FAERS Safety Report 15357364 (Version 1)
Quarter: 2018Q3

REPORT INFORMATION
  Report Type: Spontaneous
  Country: US (occurrence: US)
  Receive Date: 20180830
  Receipt Date: 20180830
  Transmission Date: 20181010
  Serious: Yes (Hospitalization)
  Sender: FDA-Public Use
  Company Number: None

PATIENT
  Age: 24 Year
  Sex: Female
  Weight: 79.83 kg

DRUGS (2)
  1. NEXPLANON [Suspect]
     Active Substance: ETONOGESTREL
     Dates: start: 20151023, end: 20180827
  2. WOMEN ONE A DAY VITAMINS [Concomitant]

REACTIONS (4)
  - Hypoaesthesia [None]
  - Pain [None]
  - Device dislocation [None]
  - Paraesthesia [None]

NARRATIVE: CASE EVENT DATE: 20180827
